FAERS Safety Report 5633552-4 (Version None)
Quarter: 2008Q1

REPORT INFORMATION
  Report Type: 
  Country: None (occurrence: None)
  Receive Date: 20080131
  Receipt Date: 20071113
  Transmission Date: 20080703
  Serious: No
  Sender: FDA-Public Use
  Company Number: 163-21880-07110902

PATIENT
  Age: 69 Year
  Sex: Female

DRUGS (2)
  1. REVLIMID [Suspect]
     Indication: MULTIPLE MYELOMA
     Dosage: 10 MG, DAILY X 21 DAYS, ORAL ; 10MG-15MG-25MG, DAILY, ORAL
     Route: 048
     Dates: start: 20070119, end: 20070701
  2. REVLIMID [Suspect]
     Indication: MULTIPLE MYELOMA
     Dosage: 10 MG, DAILY X 21 DAYS, ORAL ; 10MG-15MG-25MG, DAILY, ORAL
     Route: 048
     Dates: start: 20071015, end: 20071101

REACTIONS (1)
  - DRUG INEFFECTIVE [None]
